FAERS Safety Report 22626508 (Version 1)
Quarter: 2023Q2

REPORT INFORMATION
  Report Type: Spontaneous
  Country: BE (occurrence: BE)
  Receive Date: 20230621
  Receipt Date: 20230621
  Transmission Date: 20230721
  Serious: Yes (Other)
  Sender: FDA-Public Use
  Company Number: BE-009507513-2306BEL009444

PATIENT
  Age: 61 Year
  Sex: Male

DRUGS (2)
  1. TEMOZOLOMIDE [Suspect]
     Active Substance: TEMOZOLOMIDE
     Dosage: UNK
     Route: 048
  2. LOMUSTINE [Suspect]
     Active Substance: LOMUSTINE
     Indication: Glioblastoma
     Dosage: UNK

REACTIONS (3)
  - Brain radiation necrosis [Unknown]
  - Haematotoxicity [Unknown]
  - Product use issue [Unknown]

NARRATIVE: CASE EVENT DATE: 20230401
